FAERS Safety Report 18350209 (Version 2)
Quarter: 2020Q4

REPORT INFORMATION
  Report Type: Report from Study
  Country: US (occurrence: US)
  Receive Date: 20201006
  Receipt Date: 20201124
  Transmission Date: 20210114
  Serious: No
  Sender: FDA-Public Use
  Company Number: NVSC2020US264161

PATIENT
  Age: 85 Year
  Sex: Female

DRUGS (1)
  1. COSENTYX [Suspect]
     Active Substance: SECUKINUMAB
     Indication: PSORIASIS
     Dosage: 300 MG, QMO
     Route: 058
     Dates: start: 20200904

REACTIONS (8)
  - Pain [Unknown]
  - Incorrect dose administered [Not Recovered/Not Resolved]
  - Asthenia [Recovering/Resolving]
  - Vomiting [Recovered/Resolved]
  - Headache [Unknown]
  - Peripheral swelling [Recovering/Resolving]
  - Bone pain [Recovered/Resolved]
  - Headache [Recovered/Resolved]

NARRATIVE: CASE EVENT DATE: 20200904
